FAERS Safety Report 4380854-8 (Version None)
Quarter: 2004Q2

REPORT INFORMATION
  Report Type: 
  Country: None (occurrence: None)
  Receive Date: 20040616
  Receipt Date: 20040603
  Transmission Date: 20050107
  Serious: Yes (Hospitalization)
  Sender: FDA-Public Use
  Company Number: RENA-11051

PATIENT
  Age: 34 Year
  Sex: Male
  Weight: 68.4 kg

DRUGS (13)
  1. RENAGEL [Suspect]
     Indication: HYPERPHOSPHATAEMIA
     Dosage: 0.75 G QD PO
     Route: 048
     Dates: start: 20030616, end: 20030624
  2. RENAGEL [Suspect]
     Indication: HYPERPHOSPHATAEMIA
     Dosage: 1.5 G QD PO
     Route: 048
     Dates: start: 20030625, end: 20030828
  3. RENAGEL [Suspect]
     Indication: HYPERPHOSPHATAEMIA
     Dosage: 2.25 G QD PO
     Route: 048
     Dates: start: 20030829, end: 20031118
  4. RENAGEL [Suspect]
     Indication: HYPERPHOSPHATAEMIA
     Dosage: 2.75 G QD PO
     Route: 048
     Dates: start: 20031119, end: 20031228
  5. RENAGEL [Suspect]
     Indication: HYPERPHOSPHATAEMIA
     Dosage: 3.25 G QD PO
     Route: 048
     Dates: start: 20031229, end: 20040219
  6. RENAGEL [Suspect]
     Indication: HYPERPHOSPHATAEMIA
     Dosage: 4 G QD PO
     Route: 048
     Dates: start: 20040220, end: 20040224
  7. NICERITROL [Concomitant]
  8. COLESTILAN [Concomitant]
  9. NIFEDIPINE [Concomitant]
  10. AMLODIPINE BESYLATE [Concomitant]
  11. VALSARTAN [Concomitant]
  12. TRIAZOLAM [Concomitant]
  13. HERBAL EXTRACTS NOS [Concomitant]

REACTIONS (8)
  - ALANINE AMINOTRANSFERASE INCREASED [None]
  - ASPARTATE AMINOTRANSFERASE INCREASED [None]
  - BLOOD ALKALINE PHOSPHATASE INCREASED [None]
  - BLOOD LACTATE DEHYDROGENASE INCREASED [None]
  - GAMMA-GLUTAMYLTRANSFERASE INCREASED [None]
  - HEPATIC FUNCTION ABNORMAL [None]
  - MALAISE [None]
  - SPORTS INJURY [None]
